FAERS Safety Report 24390909 (Version 1)
Quarter: 2024Q4

REPORT INFORMATION
  Report Type: Spontaneous
  Country: ES (occurrence: ES)
  Receive Date: 20241003
  Receipt Date: 20241003
  Transmission Date: 20250115
  Serious: Yes (Other)
  Sender: CELLTRION
  Company Number: None

PATIENT

DRUGS (4)
  1. RITUXIMAB [Suspect]
     Active Substance: RITUXIMAB
     Indication: Double hit lymphoma
     Dosage: 525 MG, CYCLE
     Route: 042
     Dates: start: 20211124, end: 20221221
  2. TENOFOVIR DISOPROXIL [Concomitant]
     Active Substance: TENOFOVIR DISOPROXIL
     Indication: Antiviral prophylaxis
     Dosage: 245 MG, EVERY 1 DAY
     Route: 048
     Dates: start: 20211118
  3. TENOFOVIR DISOPROXIL [Concomitant]
     Active Substance: TENOFOVIR DISOPROXIL
     Dosage: 245 MG, EVERY 1 DAY
     Route: 048
     Dates: start: 20220121
  4. TENOFOVIR DISOPROXIL [Concomitant]
     Active Substance: TENOFOVIR DISOPROXIL
     Dosage: 245 MG, EVERY 1 DAY
     Route: 048
     Dates: start: 20220524

REACTIONS (1)
  - Pneumonitis chemical [Recovered/Resolved]

NARRATIVE: CASE EVENT DATE: 20230223
